FAERS Safety Report 8991838 (Version 2)
Quarter: 2013Q1

REPORT INFORMATION
  Report Type: Report from Study
  Country: CA (occurrence: CA)
  Receive Date: 20121231
  Receipt Date: 20130116
  Transmission Date: 20140127
  Serious: Yes (Hospitalization)
  Sender: FDA-Public Use
  Company Number: CA-JNJFOC-20121209566

PATIENT
  Age: 68 None
  Sex: Female

DRUGS (3)
  1. REMICADE [Suspect]
     Indication: RHEUMATOID ARTHRITIS
     Route: 042
     Dates: start: 20081125
  2. METHOTREXATE [Concomitant]
     Route: 058
  3. FOLIC ACID [Concomitant]
     Route: 065

REACTIONS (3)
  - Myocardial infarction [Unknown]
  - Heart rate irregular [Unknown]
  - Pneumonia [Recovering/Resolving]
